FAERS Safety Report 6648723-8 (Version None)
Quarter: 2010Q1

REPORT INFORMATION
  Report Type: 
  Country: None (occurrence: None)
  Receive Date: 20100319
  Receipt Date: 20100305
  Transmission Date: 20100710
  Serious: Yes (Hospitalization, Other)
  Sender: FDA-Public Use
  Company Number: 232421J10USA

PATIENT
  Age: 55 Year
  Sex: Female

DRUGS (3)
  1. REBIF [Suspect]
     Indication: MULTIPLE SCLEROSIS
     Dosage: 44 MCG, 3 IN 1 WEEKS, SUBCONTANEOUS
     Route: 058
     Dates: start: 20030122
  2. TYLENOL (PARACETAMINOL) [Concomitant]
  3. VESICARE [Concomitant]

REACTIONS (4)
  - BLOOD URINE PRESENT [None]
  - FALL [None]
  - HIP FRACTURE [None]
  - OSTEOARTHRITIS [None]
